FAERS Safety Report 18983518 (Version 1)
Quarter: 2021Q1

REPORT INFORMATION
  Report Type: Other
  Country: MY (occurrence: MY)
  Receive Date: 20210308
  Receipt Date: 20210308
  Transmission Date: 20210420
  Serious: Yes (Other)
  Sender: FDA-Public Use
  Company Number: MY-B.BRAUN MEDICAL INC.-2107718

PATIENT
  Age: 52 Year
  Sex: Male

DRUGS (1)
  1. METRONIDAZOLE INJECTION USP (5 MG/ML) IN PAB? PLASTIC CONTAINER (NDA 0 [Suspect]
     Active Substance: METRONIDAZOLE
     Indication: INFECTION

REACTIONS (1)
  - Drug ineffective [Recovering/Resolving]
